FAERS Safety Report 6229237-6 (Version None)
Quarter: 2009Q2

REPORT INFORMATION
  Report Type: 
  Country: None (occurrence: None)
  Receive Date: 20090601
  Receipt Date: 20081017
  Transmission Date: 20091009
  Serious: Yes (Hospitalization)
  Sender: FDA-Public Use
  Company Number: US200810004217

PATIENT
  Age: 46 Year
  Sex: Female

DRUGS (7)
  1. BYETTA [Suspect]
     Indication: DIABETES MELLITUS
     Dosage: 5 UG, 2/D, SUBCUTANEOUS, 10 UG, 2/D, SUBCUTANEOUS
     Route: 058
  2. BYETTA [Suspect]
     Indication: DIABETES MELLITUS
     Dosage: 5 UG, 2/D, SUBCUTANEOUS, 10 UG, 2/D, SUBCUTANEOUS
     Route: 058
  3. EXENATIDE 10MCG PEN, DISPOSABLE DEVICE (EXENATIDE PEN) PEN DISPOSABLE [Concomitant]
  4. NAPROXEN [Concomitant]
  5. AMARYL [Concomitant]
  6. SYNTHROID [Concomitant]
  7. ATENOLOL [Concomitant]

REACTIONS (1)
  - RENAL FAILURE ACUTE [None]
